FAERS Safety Report 5938654-0 (Version None)
Quarter: 2008Q4

REPORT INFORMATION
  Report Type: 
  Country: None (occurrence: None)
  Receive Date: 20081103
  Receipt Date: 20081027
  Transmission Date: 20090506
  Serious: Yes (Death)
  Sender: FDA-Public Use
  Company Number: DE-TEVA-179579ISR

PATIENT
  Sex: Male

DRUGS (2)
  1. CYCLOSPORINE [Suspect]
  2. METHOTREXATE [Suspect]

REACTIONS (3)
  - ENCEPHALITIS VIRAL [None]
  - GRAFT VERSUS HOST DISEASE [None]
  - PNEUMONIA ASPIRATION [None]
